FAERS Safety Report 8605344-5 (Version None)
Quarter: 2012Q3

REPORT INFORMATION
  Report Type: 
  Country: None (occurrence: None)
  Receive Date: 20120820
  Receipt Date: 20120810
  Transmission Date: 20120928
  Serious: Yes (Hospitalization)
  Sender: FDA-Public Use
  Company Number: US-BAYER-2012-024538

PATIENT
  Age: 42 Year
  Sex: Female

DRUGS (3)
  1. CABERGOLINE [Concomitant]
     Indication: PITUITARY TUMOUR
     Dosage: 0.5 MG, TAKE ? TABLET 2 TIMES A WEEK.
     Route: 048
     Dates: start: 20080520, end: 20100414
  2. YAZ [Suspect]
  3. DROSPIRENONE AND ETHINYL ESTRADIOL [Suspect]
     Dosage: UNK
     Dates: start: 20090701, end: 20100301

REACTIONS (1)
  - PULMONARY EMBOLISM [None]
